FAERS Safety Report 10158199 (Version 1)
Quarter: 2014Q2

REPORT INFORMATION
  Report Type: Spontaneous
  Country: FR (occurrence: FR)
  Receive Date: 20140507
  Receipt Date: 20140507
  Transmission Date: 20141212
  Serious: Yes (Death, Hospitalization, Other)
  Sender: FDA-Public Use
  Company Number: FR-009507513-1405FRA002121

PATIENT
  Age: 61 Year
  Sex: Female

DRUGS (2)
  1. JANUMET [Suspect]
  2. BI-PROFENID [Concomitant]
     Dosage: UNK
     Route: 048
     Dates: start: 20140324, end: 20140324

REACTIONS (4)
  - Lactic acidosis [Fatal]
  - Shock [Fatal]
  - Renal failure acute [Fatal]
  - Acute hepatic failure [Fatal]
